FAERS Safety Report 25637710 (Version 3)
Quarter: 2025Q3

REPORT INFORMATION
  Report Type: Spontaneous
  Country: JP (occurrence: JP)
  Receive Date: 20250804
  Receipt Date: 20250915
  Transmission Date: 20251021
  Serious: Yes (Other)
  Sender: ROCHE
  Company Number: JP-ROCHE-10000352735

PATIENT
  Age: 4 Year
  Sex: Male
  Weight: 20 kg

DRUGS (8)
  1. RITUXAN [Suspect]
     Active Substance: RITUXIMAB
     Indication: Nephrotic syndrome
     Route: 042
     Dates: start: 20241127, end: 20241127
  2. RITUXAN [Suspect]
     Active Substance: RITUXIMAB
     Route: 042
     Dates: start: 20250704, end: 20250704
  3. PREDONINE [Concomitant]
     Active Substance: PREDNISOLONE
     Indication: Nephrotic syndrome
     Route: 048
     Dates: start: 20250628, end: 20250704
  4. PREDONINE [Concomitant]
     Active Substance: PREDNISOLONE
     Route: 048
     Dates: start: 20250705, end: 20250711
  5. PREDONINE [Concomitant]
     Active Substance: PREDNISOLONE
     Dates: start: 20250712, end: 20250718
  6. NEORAL(CICLOSPORIN) [Concomitant]
     Indication: Nephrotic syndrome
     Route: 048
     Dates: start: 20241118
  7. TACROLIMUS [Concomitant]
     Active Substance: TACROLIMUS
     Indication: Nephrotic syndrome
     Route: 048
  8. CELLCEPT [Concomitant]
     Active Substance: MYCOPHENOLATE MOFETIL
     Indication: Nephrotic syndrome
     Route: 048
     Dates: start: 20240604

REACTIONS (1)
  - Serum sickness [Recovered/Resolved]

NARRATIVE: CASE EVENT DATE: 20250711
